FAERS Safety Report 23042475 (Version 4)
Quarter: 2023Q4

REPORT INFORMATION
  Report Type: Report from Study
  Country: US (occurrence: US)
  Receive Date: 20231008
  Receipt Date: 20231106
  Transmission Date: 20240109
  Serious: Yes (Disabling, Other)
  Sender: FDA-Public Use
  Company Number: US-ABBVIE-5439503

PATIENT
  Sex: Male
  Weight: 64.41 kg

DRUGS (4)
  1. SKYRIZI [Suspect]
     Active Substance: RISANKIZUMAB-RZAA
     Indication: Psoriatic arthropathy
     Dosage: LAST DOSE ADMINISTRATION: 2023
     Route: 058
     Dates: start: 20230105
  2. SKYRIZI [Suspect]
     Active Substance: RISANKIZUMAB-RZAA
     Dosage: DRUG START DATE IN 2023, EXACT DATE WAS NOT MENTIONED
     Route: 058
  3. GABAPENTIN [Concomitant]
     Active Substance: GABAPENTIN
     Indication: Product used for unknown indication
  4. CLOBETASOL [Concomitant]
     Active Substance: CLOBETASOL
     Indication: Product used for unknown indication

REACTIONS (18)
  - Eye injury [Not Recovered/Not Resolved]
  - Hand deformity [Not Recovered/Not Resolved]
  - Psoriatic arthropathy [Not Recovered/Not Resolved]
  - Pain [Not Recovered/Not Resolved]
  - Scratch [Not Recovered/Not Resolved]
  - Dysphagia [Not Recovered/Not Resolved]
  - Alopecia [Not Recovered/Not Resolved]
  - Skin exfoliation [Not Recovered/Not Resolved]
  - Weight decreased [Not Recovered/Not Resolved]
  - Drooling [Not Recovered/Not Resolved]
  - Onychomadesis [Not Recovered/Not Resolved]
  - Hyperhidrosis [Not Recovered/Not Resolved]
  - Pruritus [Not Recovered/Not Resolved]
  - Gait inability [Not Recovered/Not Resolved]
  - Blister [Not Recovered/Not Resolved]
  - Paraesthesia [Not Recovered/Not Resolved]
  - Cervical vertebral fracture [Not Recovered/Not Resolved]
  - Pain [Not Recovered/Not Resolved]

NARRATIVE: CASE EVENT DATE: 20230101
